FAERS Safety Report 7387187-6 (Version None)
Quarter: 2011Q1

REPORT INFORMATION
  Report Type: 
  Country: None (occurrence: None)
  Receive Date: 20110331
  Receipt Date: 20110322
  Transmission Date: 20110831
  Serious: Yes (Other)
  Sender: FDA-Public Use
  Company Number: B0708283A

PATIENT
  Age: 74 Year
  Sex: Male

DRUGS (2)
  1. SERETIDE [Suspect]
     Route: 055
  2. SPIRIVA [Concomitant]
     Route: 055

REACTIONS (9)
  - DECREASED APPETITE [None]
  - LUNG DISORDER [None]
  - BRONCHIECTASIS [None]
  - NEOPLASM MALIGNANT [None]
  - WEIGHT DECREASED [None]
  - BRONCHOPULMONARY ASPERGILLOSIS [None]
  - INFLAMMATION [None]
  - ASPERGILLUS TEST POSITIVE [None]
  - CHEST X-RAY ABNORMAL [None]
